FAERS Safety Report 6408531-X (Version None)
Quarter: 2009Q4

REPORT INFORMATION
  Report Type: 
  Country: None (occurrence: None)
  Receive Date: 20091021
  Receipt Date: 20091015
  Transmission Date: 20100525
  Serious: Yes (Hospitalization)
  Sender: FDA-Public Use
  Company Number: JP-EISAI INC.-E2090-00860-SPO-JP

PATIENT
  Sex: Female

DRUGS (4)
  1. EXCEGRAN [Suspect]
     Route: 048
     Dates: start: 19991109, end: 20090107
  2. HYSERENIN [Concomitant]
     Indication: EPILEPSY
     Dates: start: 19990205
  3. MYSTAN [Concomitant]
     Indication: EPILEPSY
     Dates: start: 20051209
  4. PHENOBARBITAL TAB [Concomitant]
     Indication: EPILEPSY
     Dates: start: 19981222

REACTIONS (1)
  - CALCULUS URINARY [None]
